FAERS Safety Report 16189164 (Version 1)
Quarter: 2019Q2

REPORT INFORMATION
  Report Type: Spontaneous
  Country: US (occurrence: US)
  Receive Date: 20190412
  Receipt Date: 20190412
  Transmission Date: 20190711
  Serious: No
  Sender: FDA-Public Use
  Company Number: US-AMGEN INC.-USASP2019049327

PATIENT

DRUGS (3)
  1. AIMOVIG [Suspect]
     Active Substance: ERENUMAB-AOOE
     Indication: PRODUCT USED FOR UNKNOWN INDICATION
     Dosage: UNK
     Route: 065
  2. TREXIMET [Concomitant]
     Active Substance: NAPROXEN SODIUM\SUMATRIPTAN SUCCINATE
     Dosage: UNK
  3. TROKENDI [Concomitant]
     Active Substance: TOPIRAMATE
     Dosage: UNK

REACTIONS (2)
  - Headache [Unknown]
  - Nausea [Unknown]
